FAERS Safety Report 13028903 (Version 6)
Quarter: 2017Q2

REPORT INFORMATION
  Report Type: Report from Study
  Country: EG (occurrence: EG)
  Receive Date: 20161214
  Receipt Date: 20170516
  Transmission Date: 20170830
  Serious: Yes (Death, Hospitalization)
  Sender: FDA-Public Use
  Company Number: EG-B.I. PHARMACEUTICALS,INC./RIDGEFIELD-2016-BI-084192

PATIENT
  Age: 73 Year
  Sex: Male
  Weight: 67 kg

DRUGS (6)
  1. BIBF 1120 [Suspect]
     Active Substance: NINTEDANIB
     Indication: PLEURAL MESOTHELIOMA MALIGNANT
     Route: 048
     Dates: start: 20161130, end: 20161205
  2. FOLIC ACID. [Concomitant]
     Active Substance: FOLIC ACID
     Indication: PROPHYLACTIC CHEMOTHERAPY
     Route: 048
     Dates: start: 20161122
  3. CISPLATIN. [Suspect]
     Active Substance: CISPLATIN
     Indication: PLEURAL MESOTHELIOMA MALIGNANT
     Dosage: TOTAL DAILY DOSE: 25MG/4 (127) MG
     Route: 042
     Dates: start: 20161129, end: 20161129
  4. PEMETREXED. [Suspect]
     Active Substance: PEMETREXED
     Indication: PLEURAL MESOTHELIOMA MALIGNANT
     Dosage: TOTAL DAILY DOSE: (850) 150 MG/M2
     Route: 042
     Dates: start: 20161129, end: 20161129
  5. VITAMIN B12 [Concomitant]
     Active Substance: CYANOCOBALAMIN
     Indication: PROPHYLACTIC CHEMOTHERAPY
     Route: 030
     Dates: start: 20161122
  6. EMAND [Concomitant]
     Indication: VOMITING
     Route: 048
     Dates: start: 20161129, end: 20161209

REACTIONS (9)
  - Pyrexia [Recovered/Resolved]
  - Pneumonia [Recovered/Resolved]
  - Rash [Not Recovered/Not Resolved]
  - Thrombocytopenia [Not Recovered/Not Resolved]
  - Lipids increased [Recovered/Resolved]
  - Death [Fatal]
  - Neutropenia [Recovered/Resolved]
  - Diarrhoea [Recovered/Resolved]
  - Mucosal inflammation [Recovered/Resolved]

NARRATIVE: CASE EVENT DATE: 20161206
